FAERS Safety Report 8571046-7 (Version None)
Quarter: 2012Q3

REPORT INFORMATION
  Report Type: 
  Country: None (occurrence: None)
  Receive Date: 20120730
  Receipt Date: 20120730
  Transmission Date: 20120928
  Serious: Yes (Other)
  Sender: FDA-Public Use
  Company Number: None

PATIENT
  Age: 34 Year
  Sex: Male
  Weight: 81.6475 kg

DRUGS (1)
  1. CIPROFLOXACIN [Suspect]
     Indication: INFECTION
     Dosage: 1 TABLET TWICE DAILY
     Route: 048
     Dates: start: 20120614, end: 20120721

REACTIONS (3)
  - GAIT DISTURBANCE [None]
  - TENDONITIS [None]
  - INSOMNIA [None]
